FAERS Safety Report 4877477-0 (Version None)
Quarter: 2006Q1

REPORT INFORMATION
  Report Type: 
  Country: None (occurrence: None)
  Receive Date: 20060109
  Receipt Date: 20060109
  Transmission Date: 20060701
  Serious: Yes (Other)
  Sender: FDA-Public Use
  Company Number: None

PATIENT
  Sex: Female
  Weight: 45 kg

DRUGS (2)
  1. CYCLOPHOSPHAMIDE [Suspect]
     Indication: BREAST CANCER
     Dosage: SEE IMAGE
     Route: 042
     Dates: start: 20051220, end: 20051220
  2. DOXORUBICIN HCL [Suspect]
     Dosage: SEE IMAGE
     Dates: end: 20051220

REACTIONS (3)
  - ANAEMIA [None]
  - DRUG TOXICITY [None]
  - PLATELET COUNT DECREASED [None]
